FAERS Safety Report 4564242-7 (Version None)
Quarter: 2005Q1

REPORT INFORMATION
  Report Type: 
  Country: None (occurrence: None)
  Receive Date: 20050128
  Receipt Date: 20031215
  Transmission Date: 20050727
  Serious: No
  Sender: FDA-Public Use
  Company Number: 03US09122

PATIENT
  Age: 51 Year
  Sex: Male
  Weight: 81.4 kg

DRUGS (1)
  1. COMBIVIR [Suspect]
     Indication: HIV INFECTION
     Route: 048

REACTIONS (4)
  - ASTHENIA [None]
  - DEFICIENCY ANAEMIA [None]
  - DYSPNOEA [None]
  - GOUT [None]
